FAERS Safety Report 8127505-4 (Version None)
Quarter: 2012Q1

REPORT INFORMATION
  Report Type: 
  Country: None (occurrence: None)
  Receive Date: 20120210
  Receipt Date: 20120207
  Transmission Date: 20120608
  Serious: Yes (Hospitalization)
  Sender: FDA-Public Use
  Company Number: CA-AMGEN-CANNI2011059113

PATIENT
  Age: 75 Year
  Sex: Female

DRUGS (16)
  1. ATROVENT [Concomitant]
  2. OXYGEN [Concomitant]
  3. FLOVENT [Concomitant]
     Dosage: UNK UNK, BID
     Dates: start: 20060329
  4. PREDNISONE TAB [Concomitant]
     Dosage: UNK
     Route: 048
     Dates: start: 20100707
  5. METHOTREXATE [Suspect]
     Dosage: 20 MG, QWK
     Route: 048
     Dates: start: 20080730, end: 20100809
  6. ATIVAN [Concomitant]
     Indication: ANXIETY
     Dosage: 1 MG, UNK
     Route: 048
     Dates: start: 20060329
  7. PREVACID [Concomitant]
     Dosage: 30 MG, UNK
     Route: 048
     Dates: start: 20040623
  8. ACTONEL [Concomitant]
     Indication: OSTEOPOROSIS
     Dosage: 35 MG, UNK
     Route: 048
     Dates: start: 20060101
  9. CARBOCAL [Concomitant]
     Indication: OSTEOPOROSIS
     Dosage: UNK
     Route: 048
     Dates: start: 20060101
  10. ETANERCEPT [Suspect]
     Indication: RHEUMATOID ARTHRITIS
     Dosage: 50 MG, QWK
     Route: 058
     Dates: start: 20100807, end: 20110910
  11. PRAVACHOL [Concomitant]
     Indication: BLOOD CHOLESTEROL INCREASED
     Dosage: 20 MG, UNK
     Route: 048
     Dates: start: 20021021
  12. ACETAMINOPHEN [Concomitant]
     Dosage: 500 MG, UNK
     Route: 048
     Dates: start: 20060101
  13. INDAPAMIDE [Concomitant]
     Dosage: UNK
     Route: 048
     Dates: start: 20060329
  14. FLEXERIL [Concomitant]
     Dosage: 10 MG, UNK
     Route: 048
     Dates: start: 20090325
  15. EVISTA [Concomitant]
     Dosage: UNK
     Dates: start: 20020101
  16. BRICANYL [Concomitant]
     Dosage: UNK
     Dates: start: 20060329

REACTIONS (1)
  - DIPLEGIA [None]
